FAERS Safety Report 5935815-1 (Version None)
Quarter: 2008Q4

REPORT INFORMATION
  Report Type: 
  Country: None (occurrence: None)
  Receive Date: 20081030
  Receipt Date: 20081022
  Transmission Date: 20090506
  Serious: Yes (Hospitalization, Other)
  Sender: FDA-Public Use
  Company Number: PHHY2008CA04085

PATIENT
  Sex: Female

DRUGS (2)
  1. SANDOSTATIN LAR [Suspect]
     Indication: CARCINOID TUMOUR
     Dosage: 30 MG, QMO
     Route: 030
     Dates: start: 20060220, end: 20080206
  2. SANDOSTATIN LAR [Suspect]
     Dosage: 20 MG, QMO
     Route: 030
     Dates: start: 20080411, end: 20080827

REACTIONS (7)
  - BILE DUCT STONE [None]
  - CONTUSION [None]
  - DISCOMFORT [None]
  - INTESTINAL OBSTRUCTION [None]
  - LIVER DISORDER [None]
  - SURGERY [None]
  - SURGICAL STAPLING [None]
